FAERS Safety Report 6751123-3 (Version None)
Quarter: 2010Q2

REPORT INFORMATION
  Report Type: 
  Country: None (occurrence: None)
  Receive Date: 20100602
  Receipt Date: 20100520
  Transmission Date: 20101027
  Serious: Yes (Other)
  Sender: FDA-Public Use
  Company Number: IT-JNJFOC-20100600055

PATIENT
  Age: 75 Year
  Sex: Female

DRUGS (1)
  1. LEVOFLOXACIN [Suspect]
     Indication: CYSTITIS
     Route: 065

REACTIONS (5)
  - AGEUSIA [None]
  - ANOSMIA [None]
  - INFLUENZA [None]
  - NASOPHARYNGITIS [None]
  - PYREXIA [None]
